FAERS Safety Report 9193726 (Version 2)
Quarter: 2013Q2

REPORT INFORMATION
  Report Type: Spontaneous
  Country: US (occurrence: US)
  Receive Date: 20130327
  Receipt Date: 20130513
  Transmission Date: 20140414
  Serious: No
  Sender: FDA-Public Use
  Company Number: US-PFIZER INC-2013096397

PATIENT
  Age: 50 Year
  Sex: Male
  Weight: 122 kg

DRUGS (3)
  1. LYRICA [Suspect]
     Indication: DIABETIC NEUROPATHY
     Dosage: 150 MG, 4X/DAY
     Route: 048
  2. NORVASC [Concomitant]
     Indication: CARDIAC DISORDER
     Dosage: 10 MG DAILY
     Dates: start: 2010
  3. PROTONIX [Concomitant]
     Indication: PROPHYLAXIS AGAINST GASTROINTESTINAL ULCER
     Dosage: 40 MG DAILY
     Dates: start: 2010

REACTIONS (1)
  - Neuralgia [Not Recovered/Not Resolved]
